FAERS Safety Report 16357766 (Version 1)
Quarter: 2019Q2

REPORT INFORMATION
  Report Type: Spontaneous
  Country: US (occurrence: US)
  Receive Date: 20190527
  Receipt Date: 20190527
  Transmission Date: 20190711
  Serious: Yes (Other)
  Sender: FDA-Public Use
  Company Number: PHHY2019US120847

PATIENT
  Age: 14 Year
  Sex: Male

DRUGS (3)
  1. FENTANYL. [Suspect]
     Active Substance: FENTANYL
     Indication: PRODUCT USED FOR UNKNOWN INDICATION
     Dosage: UNK (50 MUG/H)
     Route: 065
  2. BUPROPION. [Suspect]
     Active Substance: BUPROPION
     Indication: DEPRESSION
     Route: 065
  3. MIDAZOLAM [Concomitant]
     Active Substance: MIDAZOLAM HYDROCHLORIDE
     Indication: PRODUCT USED FOR UNKNOWN INDICATION
     Route: 065

REACTIONS (8)
  - Seizure [Recovering/Resolving]
  - Clonus [Recovering/Resolving]
  - Mental status changes [Recovering/Resolving]
  - Autonomic nervous system imbalance [Recovering/Resolving]
  - Serotonin syndrome [Unknown]
  - Agitation [Recovering/Resolving]
  - Overdose [Unknown]
  - Status epilepticus [Recovering/Resolving]
